FAERS Safety Report 7203581-8 (Version None)
Quarter: 2010Q4

REPORT INFORMATION
  Report Type: 
  Country: None (occurrence: None)
  Receive Date: 20101230
  Receipt Date: 20101221
  Transmission Date: 20110411
  Serious: Yes (Death)
  Sender: FDA-Public Use
  Company Number: ES-ABBOTT-10P-144-0693249-00

PATIENT
  Age: 50 Year
  Sex: Female

DRUGS (6)
  1. AKINETON [Suspect]
     Indication: PRODUCT USED FOR UNKNOWN INDICATION
     Dosage: 4MG PROLONGED RELEASE TABLET, 50 TABLETS
     Route: 048
     Dates: start: 20000101, end: 20101029
  2. ATROPINE [Suspect]
     Indication: INDUCTION AND MAINTENANCE OF ANAESTHESIA
     Dosage: 2MG TOTAL DOSE
     Route: 042
     Dates: start: 20101029, end: 20101029
  3. PROPOFOL [Suspect]
     Indication: INDUCTION AND MAINTENANCE OF ANAESTHESIA
     Dosage: 150MG TOTAL DOSE
     Route: 042
     Dates: start: 20101029, end: 20101029
  4. BESITRAN [Suspect]
     Indication: SCHIZOPHRENIA
     Route: 048
     Dates: start: 20070101, end: 20101029
  5. FENTANEST [Suspect]
     Indication: INDUCTION AND MAINTENANCE OF ANAESTHESIA
     Dosage: 100MG TOTAL DOSE
     Route: 042
     Dates: start: 20101029, end: 20101029
  6. RISPERDAL [Suspect]
     Indication: SCHIZOPHRENIA
     Dosage: 9MG DAILY DOSE
     Route: 048
     Dates: start: 20000101, end: 20101029

REACTIONS (4)
  - CARDIO-RESPIRATORY ARREST [None]
  - ELECTROCARDIOGRAM QT PROLONGED [None]
  - HAEMODYNAMIC INSTABILITY [None]
  - VENTRICULAR FIBRILLATION [None]
